FAERS Safety Report 5717522-3 (Version None)
Quarter: 2008Q2

REPORT INFORMATION
  Report Type: 
  Country: None (occurrence: None)
  Receive Date: 20080425
  Receipt Date: 20080422
  Transmission Date: 20081010
  Serious: Yes (Death, Hospitalization)
  Sender: FDA-Public Use
  Company Number: FR-BRISTOL-MYERS SQUIBB COMPANY-14160311

PATIENT
  Age: 80 Year
  Sex: Female

DRUGS (7)
  1. APROVEL TABS 300 MG [Suspect]
     Dates: start: 20040101, end: 20071016
  2. SINTROM [Suspect]
     Dates: start: 19930101, end: 20071016
  3. LASILIX RETARD [Suspect]
     Dates: start: 20040101, end: 20071016
  4. CATAPRES [Suspect]
     Dates: start: 20040101, end: 20071016
  5. CHRONADALATE [Suspect]
     Dates: start: 20071016, end: 20071016
  6. HYDREA [Concomitant]
     Dates: start: 19990101
  7. FENOFIBRATE [Concomitant]
     Dates: start: 20040101

REACTIONS (8)
  - BRAIN HERNIATION [None]
  - COMA [None]
  - FALL [None]
  - HYPERCREATININAEMIA [None]
  - MALAISE [None]
  - PNEUMOCEPHALUS [None]
  - SKULL FRACTURED BASE [None]
  - SUBDURAL HAEMATOMA [None]
